FAERS Safety Report 9485303 (Version 3)
Quarter: 2013Q3

REPORT INFORMATION
  Report Type: Spontaneous
  Country: JP (occurrence: JP)
  Receive Date: 20130828
  Receipt Date: 20130905
  Transmission Date: 20140515
  Serious: Yes (Other)
  Sender: FDA-Public Use
  Company Number: JP-ABBOTT-13P-087-1132994-00

PATIENT
  Age: 36 Year
  Sex: Female

DRUGS (1)
  1. LUVOX [Suspect]
     Indication: PRODUCT USED FOR UNKNOWN INDICATION
     Route: 048

REACTIONS (6)
  - Pharyngitis [Recovered/Resolved]
  - Pharyngitis [Recovered/Resolved]
  - Pharyngeal ulceration [Unknown]
  - Pharyngeal ulceration [Unknown]
  - Foreign body [Recovered/Resolved]
  - Foreign body [Recovered/Resolved]
